FAERS Safety Report 7457363-2 (Version None)
Quarter: 2011Q2

REPORT INFORMATION
  Report Type: 
  Country: None (occurrence: None)
  Receive Date: 20110504
  Receipt Date: 20110419
  Transmission Date: 20111010
  Serious: No
  Sender: FDA-Public Use
  Company Number: US-B.I. PHARMACEUTICALS,INC./RIDGEFIELD-2011-BP-03053BP

PATIENT
  Sex: Male

DRUGS (9)
  1. VYTORIN [Concomitant]
  2. LASIX [Concomitant]
  3. SPIRIVA [Suspect]
     Indication: DYSPNOEA
     Dosage: 18 MCG
     Route: 055
     Dates: start: 20101201, end: 20110113
  4. AMLODIPINE [Concomitant]
  5. KLOR-CON M20 [Concomitant]
  6. EMUSIP [Concomitant]
  7. ATENOLOL [Concomitant]
  8. WARFARIN [Concomitant]
  9. DUREZOL [Concomitant]

REACTIONS (8)
  - BLOOD PRESSURE INCREASED [None]
  - HEART RATE INCREASED [None]
  - CATARACT OPERATION [None]
  - DRY MOUTH [None]
  - UNEVALUABLE EVENT [None]
  - INFLAMMATION [None]
  - OCULAR HYPERAEMIA [None]
  - EYE DISORDER [None]
